FAERS Safety Report 7076804-6 (Version None)
Quarter: 2010Q4

REPORT INFORMATION
  Report Type: 
  Country: None (occurrence: None)
  Receive Date: 20101101
  Receipt Date: 20101022
  Transmission Date: 20110411
  Serious: Yes (Hospitalization)
  Sender: FDA-Public Use
  Company Number: CH-ASTRAZENECA-2010SE50524

PATIENT
  Age: 23967 Day
  Sex: Male
  Weight: 69 kg

DRUGS (8)
  1. ATACAND [Suspect]
     Route: 048
  2. DEXAMETHASONE [Suspect]
     Indication: MULTIPLE MYELOMA
     Route: 065
     Dates: start: 20100824, end: 20100830
  3. DEXAMETHASONE [Suspect]
     Route: 065
     Dates: start: 20100913
  4. LENALIDOMIDE [Suspect]
     Indication: MULTIPLE MYELOMA
     Route: 048
     Dates: start: 20100824, end: 20100830
  5. LENALIDOMIDE [Suspect]
     Route: 048
     Dates: start: 20100921
  6. CLARITHROMYCIN [Suspect]
     Route: 048
     Dates: start: 20100817, end: 20100826
  7. CLEXANE [Concomitant]
     Indication: THROMBOSIS PROPHYLAXIS
  8. ASPIRIN [Concomitant]
     Indication: THROMBOSIS PROPHYLAXIS

REACTIONS (3)
  - HYPOTENSION [None]
  - RENAL FAILURE ACUTE [None]
  - SEPSIS [None]
